FAERS Safety Report 4934059-X (Version None)
Quarter: 2006Q1

REPORT INFORMATION
  Report Type: 
  Country: None (occurrence: None)
  Receive Date: 20060303
  Receipt Date: 20060220
  Transmission Date: 20060701
  Serious: Yes (Death)
  Sender: FDA-Public Use
  Company Number: 2003187431NO

PATIENT
  Age: 73 Year
  Sex: Male

DRUGS (3)
  1. FRAGMIN [Suspect]
     Indication: PULMONARY EMBOLISM
     Dosage: ADMINISTERED AT 15.45 HOURS (15000 I.U., 1 IN 1 D), SUBCUTANEOUS
     Route: 058
     Dates: start: 20031015, end: 20031015
  2. HEPARIN SODIUM [Suspect]
     Indication: PULMONARY EMBOLISM
     Dosage: ADMINISTERED AT 20.15-20.30 HOURS (20000 I.U., 1 IN 1 D), INTRAVENOUS
     Route: 042
     Dates: start: 20031015, end: 20031015
  3. ALTEPLASE (ALTEPLASE) [Suspect]
     Indication: PULMONARY EMBOLISM
     Dosage: ADMINSTERED AT 17.55-20.00 HOURS (100 MG, 1 IN 1 D), INTRAVENOUS
     Route: 042
     Dates: start: 20031015, end: 20031015

REACTIONS (3)
  - CEREBRAL HAEMORRHAGE [None]
  - DRUG PRESCRIBING ERROR [None]
  - INAPPROPRIATE SCHEDULE OF DRUG ADMINISTRATION [None]
